FAERS Safety Report 22183922 (Version 1)
Quarter: 2023Q2

REPORT INFORMATION
  Report Type: Report from Study
  Country: US (occurrence: US)
  Receive Date: 20230406
  Receipt Date: 20230406
  Transmission Date: 20230721
  Serious: Yes (Other)
  Sender: FDA-Public Use
  Company Number: US-ABBVIE-22K-163-4423333-00

PATIENT
  Sex: Female

DRUGS (1)
  1. HUMIRA [Suspect]
     Active Substance: ADALIMUMAB
     Indication: Crohn^s disease
     Dosage: CF, FORM STRENGTH 40MG
     Route: 058
     Dates: start: 20210928

REACTIONS (6)
  - Nephrolithiasis [Not Recovered/Not Resolved]
  - Therapeutic product effect incomplete [Recovering/Resolving]
  - Skin exfoliation [Unknown]
  - Crohn^s disease [Recovering/Resolving]
  - Alopecia [Unknown]
  - Stress [Unknown]
